FAERS Safety Report 13896307 (Version 1)
Quarter: 2017Q3

REPORT INFORMATION
  Report Type: Spontaneous
  Country: US (occurrence: None)
  Receive Date: 20170814
  Receipt Date: 20170814
  Transmission Date: 20171127
  Serious: Yes (Hospitalization)
  Sender: FDA-Public Use
  Company Number: None

PATIENT
  Age: 49 Year
  Sex: Female

DRUGS (1)
  1. OPSUMIT [Suspect]
     Active Substance: MACITENTAN
     Indication: PULMONARY ARTERIAL HYPERTENSION
     Route: 048
     Dates: start: 20161222

REACTIONS (5)
  - Miosis [None]
  - Hypertension [None]
  - Confusional state [None]
  - Subdural haematoma [None]
  - Oedema peripheral [None]

NARRATIVE: CASE EVENT DATE: 20170726
